APPROVED DRUG PRODUCT: BRIVARACETAM
Active Ingredient: BRIVARACETAM
Strength: 50MG
Dosage Form/Route: TABLET;ORAL
Application: A214848 | Product #001 | TE Code: AB
Applicant: AUROBINDO PHARMA LTD
Approved: Jan 6, 2023 | RLD: No | RS: No | Type: RX